FAERS Safety Report 16805461 (Version 1)
Quarter: 2019Q3

REPORT INFORMATION
  Report Type: Spontaneous
  Country: US (occurrence: US)
  Receive Date: 20190913
  Receipt Date: 20190913
  Transmission Date: 20191005
  Serious: Yes (Hospitalization)
  Sender: FDA-Public Use
  Company Number: US-SA-2019SA250861

PATIENT
  Age: 54 Year
  Sex: Female

DRUGS (2)
  1. ADMELOG [Suspect]
     Active Substance: INSULIN LISPRO
     Indication: TYPE 2 DIABETES MELLITUS
     Dosage: 15 TO 30 UNITS DAILY ON A SLIDING SCALE
     Route: 065
  2. BASAGLAR [Concomitant]
     Active Substance: INSULIN GLARGINE
     Route: 065

REACTIONS (4)
  - Rash [Unknown]
  - Urticaria [Unknown]
  - Rash pruritic [Unknown]
  - Seizure [Unknown]
